FAERS Safety Report 4513411-0 (Version None)
Quarter: 2004Q4

REPORT INFORMATION
  Report Type: 
  Country: None (occurrence: None)
  Receive Date: 20041130
  Receipt Date: 20040921
  Transmission Date: 20050328
  Serious: No
  Sender: FDA-Public Use
  Company Number: US-BRISTOL-MYERS SQUIBB COMPANY-12709648

PATIENT
  Age: 70 Year
  Sex: Male

DRUGS (8)
  1. ERBITUX [Suspect]
     Indication: COLON CANCER METASTATIC
     Dosage: LOADING DOSE REPORTED AS BOTH 700 AND 800 MG
     Route: 042
     Dates: start: 20040908, end: 20040908
  2. BENADRYL [Suspect]
     Indication: PREMEDICATION
     Route: 042
     Dates: start: 20040908, end: 20040908
  3. COUMADIN [Concomitant]
  4. LOPRESSOR [Concomitant]
  5. ATENOLOL [Concomitant]
  6. DIGOXIN [Concomitant]
  7. POTASSIUM [Concomitant]
  8. LOTREL [Concomitant]

REACTIONS (2)
  - RASH [None]
  - RESTLESS LEGS SYNDROME [None]
